FAERS Safety Report 18510332 (Version 1)
Quarter: 2020Q4

REPORT INFORMATION
  Report Type: Spontaneous
  Country: US (occurrence: US)
  Receive Date: 20201116
  Receipt Date: 20201116
  Transmission Date: 20210114
  Serious: Yes (Other)
  Sender: FDA-Public Use
  Company Number: None

PATIENT
  Age: 79 Year
  Sex: Female
  Weight: 67.05 kg

DRUGS (13)
  1. SUTENT [Suspect]
     Active Substance: SUNITINIB MALATE
     Indication: GASTROINTESTINAL STROMAL TUMOUR
     Dosage: ?          OTHER FREQUENCY:EVERY OTHER DAY;?
     Route: 048
     Dates: start: 20200131
  2. ATENOLOL 50MG ORAL [Concomitant]
  3. LOSARTAN POTASSIUM 25MG ORAL [Concomitant]
  4. SPIRIVA HANDIHALER 18MCG INHALATION [Concomitant]
  5. XOPENEX HFA 45MCG/ ACY INHALATION [Concomitant]
  6. ATORVASTATIN 10MG ORAL [Concomitant]
  7. ALPRAZOLAM 0.5MG ORAL [Concomitant]
  8. AMLODIPINE 10MG ORAL [Concomitant]
  9. ELIQUIS 2.5MG ORAL [Concomitant]
  10. PULMICORT 0.5MG/2ML INHALATION [Concomitant]
  11. PREMARIN 0.625MG/GM VAGINALLY [Concomitant]
  12. VITAMIN D ORAL [Concomitant]
  13. VITAMIN C ORAL [Concomitant]

REACTIONS (2)
  - Hypertension [None]
  - Blood pressure systolic increased [None]

NARRATIVE: CASE EVENT DATE: 20201116
